FAERS Safety Report 24624825 (Version 1)
Quarter: 2024Q4

REPORT INFORMATION
  Report Type: Spontaneous
  Country: CN (occurrence: CN)
  Receive Date: 20241115
  Receipt Date: 20241115
  Transmission Date: 20250115
  Serious: Yes (Other)
  Sender: B BRAUN
  Company Number: CN-B.Braun Medical Inc.-2165127

PATIENT
  Age: 66 Year
  Sex: Female
  Weight: 35 kg

DRUGS (1)
  1. NUTRILIPID I.V. FAT EMULSION [Suspect]
     Active Substance: SOYBEAN OIL
     Indication: Nutritional supplementation

REACTIONS (1)
  - Urinary retention [Recovering/Resolving]
